FAERS Safety Report 6862131-6 (Version None)
Quarter: 2010Q3

REPORT INFORMATION
  Report Type: 
  Country: None (occurrence: None)
  Receive Date: 20100721
  Receipt Date: 20100714
  Transmission Date: 20110219
  Serious: Yes (Life-Threatening, Hospitalization)
  Sender: FDA-Public Use
  Company Number: PHHY2010US46475

PATIENT
  Age: 70 Year
  Sex: Female

DRUGS (2)
  1. TEKTURNA [Suspect]
     Dosage: UNK
  2. FUROSEMIDE [Concomitant]
     Dosage: UNK

REACTIONS (5)
  - ARTHRALGIA [None]
  - MULTI-ORGAN FAILURE [None]
  - PYREXIA [None]
  - STEVENS-JOHNSON SYNDROME [None]
  - SWELLING [None]
